FAERS Safety Report 5689331-5 (Version None)
Quarter: 2008Q1

REPORT INFORMATION
  Report Type: 
  Country: None (occurrence: None)
  Receive Date: 20080328
  Receipt Date: 20080320
  Transmission Date: 20080703
  Serious: Yes (Other)
  Sender: FDA-Public Use
  Company Number: 2008007028

PATIENT
  Age: 16 Year
  Sex: Female
  Weight: 54 kg

DRUGS (2)
  1. BENADRYL [Suspect]
     Indication: RASH
     Dosage: 1 KAPSEAL EVERY 8 HOURS. (3 IN 1 D), ORAL
     Route: 048
     Dates: start: 20080317
  2. BENADRYL CREAM EXTRA STRENGTH (DIPHENHYRAMINE, ZINC ACETATE) [Suspect]
     Indication: RASH
     Dosage: TOPICAL
     Route: 061
     Dates: start: 20080320, end: 20080320

REACTIONS (2)
  - APPLICATION SITE IRRITATION [None]
  - APPLICATION SITE SWELLING [None]
